FAERS Safety Report 6045050-7 (Version None)
Quarter: 2009Q1

REPORT INFORMATION
  Report Type: 
  Country: None (occurrence: None)
  Receive Date: 20090121
  Receipt Date: 20090109
  Transmission Date: 20090719
  Serious: Yes (Hospitalization, Other)
  Sender: FDA-Public Use
  Company Number: US-WYE-H07608909

PATIENT
  Age: 73 Year
  Sex: Female
  Weight: 64 kg

DRUGS (8)
  1. TEMSIROLIMUS [Suspect]
     Indication: MALIGNANT PERITONEAL NEOPLASM
     Route: 042
     Dates: start: 20080731, end: 20081126
  2. COUMADIN [Concomitant]
  3. MULTI-VITAMINS [Concomitant]
  4. LASIX [Concomitant]
  5. COMPAZINE [Concomitant]
  6. ATARAX [Concomitant]
  7. MACROBID [Concomitant]
     Indication: URINARY TRACT INFECTION
     Dosage: UNKNOWN DOSE FOR 10 DAYS
     Dates: start: 20081022, end: 20081031
  8. ZOFRAN [Concomitant]

REACTIONS (6)
  - DEHYDRATION [None]
  - HAEMOGLOBIN DECREASED [None]
  - HYPOKALAEMIA [None]
  - LUNG INFILTRATION [None]
  - PNEUMONITIS [None]
  - PYREXIA [None]
